FAERS Safety Report 21733923 (Version 1)
Quarter: 2022Q4

REPORT INFORMATION
  Report Type: Spontaneous
  Country: US (occurrence: None)
  Receive Date: 20221214
  Receipt Date: 20221214
  Transmission Date: 20230113
  Serious: Yes (Hospitalization)
  Sender: FDA-Public Use
  Company Number: None

PATIENT
  Age: 70 Year
  Sex: Female

DRUGS (13)
  1. OPSUMIT [Suspect]
     Active Substance: MACITENTAN
     Indication: Pulmonary hypertension
     Dosage: FREQUENCY : DAILY;?
     Route: 048
     Dates: start: 20210316
  2. SILDENAFIL [Concomitant]
     Active Substance: SILDENAFIL
  3. SELEXIPAG [Concomitant]
     Active Substance: SELEXIPAG
  4. BUMEX [Concomitant]
     Active Substance: BUMETANIDE
  5. PREDNISONE [Concomitant]
     Active Substance: PREDNISONE
  6. ATOVAQUONE [Concomitant]
     Active Substance: ATOVAQUONE
  7. HUMULIN R [Concomitant]
     Active Substance: INSULIN HUMAN
  8. ATORVASTATIN [Concomitant]
     Active Substance: ATORVASTATIN
  9. SPIRONOLACTONE [Concomitant]
     Active Substance: SPIRONOLACTONE
  10. INSULIN GLARGINE [Concomitant]
     Active Substance: INSULIN GLARGINE
  11. abapentin miralax [Concomitant]
  12. CALCIUM CARBONATE [Concomitant]
     Active Substance: CALCIUM CARBONATE
  13. ASPIRIN [Concomitant]
     Active Substance: ASPIRIN

REACTIONS (1)
  - Hypervolaemia [None]

NARRATIVE: CASE EVENT DATE: 20221203
